FAERS Safety Report 12803007 (Version 1)
Quarter: 2016Q4

REPORT INFORMATION
  Report Type: Spontaneous
  Country: AU (occurrence: AU)
  Receive Date: 20161003
  Receipt Date: 20161003
  Transmission Date: 20170207
  Serious: Yes (Other)
  Sender: FDA-Public Use
  Company Number: AU-OTSUKA-2016_023260

PATIENT
  Sex: Male

DRUGS (1)
  1. ABILIFY MAINTENA [Suspect]
     Active Substance: ARIPIPRAZOLE
     Indication: PRODUCT USED FOR UNKNOWN INDICATION
     Dosage: UNKNOWN
     Route: 065

REACTIONS (9)
  - Eye disorder [Unknown]
  - Hypotension [Unknown]
  - Chest pain [Unknown]
  - Crying [Unknown]
  - Mood altered [Unknown]
  - Heart rate increased [Unknown]
  - Self-injurious ideation [Unknown]
  - Anxiety [Unknown]
  - Feeling abnormal [Unknown]
